FAERS Safety Report 6677385-9 (Version None)
Quarter: 2010Q2

REPORT INFORMATION
  Report Type: 
  Country: None (occurrence: None)
  Receive Date: 20100412
  Receipt Date: 20100122
  Transmission Date: 20101027
  Serious: No
  Sender: FDA-Public Use
  Company Number: US-ALEXION-A201000083

PATIENT
  Sex: Female

DRUGS (8)
  1. SOLIRIS [Suspect]
     Indication: PAROXYSMAL NOCTURNAL HAEMOGLOBINURIA
     Dosage: 600 MG, QW X 4
     Route: 042
     Dates: start: 20091202
  2. SOLIRIS [Suspect]
     Dosage: 900 MG, Q2W
     Route: 042
     Dates: start: 20091230
  3. CAPECITABINE [Concomitant]
     Indication: COLON CANCER
     Dosage: UNK
     Route: 048
  4. ZOFRAN [Concomitant]
     Indication: NAUSEA
     Dosage: UNK
     Route: 048
  5. PRILOSEC [Concomitant]
     Dosage: UNK
     Route: 048
  6. BENTYL [Concomitant]
     Dosage: UNK
     Route: 048
  7. CALCIUM [Concomitant]
     Dosage: UNK
     Route: 048
  8. VITAMIN A [Concomitant]
     Dosage: UNK
     Route: 048

REACTIONS (2)
  - CONTUSION [None]
  - PLATELET COUNT DECREASED [None]
